FAERS Safety Report 15028767 (Version 1)
Quarter: 2018Q2

REPORT INFORMATION
  Report Type: Spontaneous
  Country: US (occurrence: US)
  Receive Date: 20180619
  Receipt Date: 20180619
  Transmission Date: 20180711
  Serious: Yes (Other)
  Sender: FDA-Public Use
  Company Number: US-SA-2017SA253301

PATIENT
  Age: 58 Year
  Sex: Female
  Weight: 51.7 kg

DRUGS (11)
  1. LIPITOR [Concomitant]
     Active Substance: ATORVASTATIN CALCIUM
     Dosage: 10 MG, QD
  2. METFORMIN HYDROCHLORIDE. [Concomitant]
     Active Substance: METFORMIN HYDROCHLORIDE
     Dosage: UNK UNK,UNK
     Route: 065
     Dates: start: 1995
  3. NEOSAR [Concomitant]
     Active Substance: CYCLOPHOSPHAMIDE
  4. TAXOL [Concomitant]
     Active Substance: PACLITAXEL
  5. TAXOTERE [Suspect]
     Active Substance: DOCETAXEL
     Dosage: 145 MG,QCY
     Route: 042
     Dates: start: 20031023, end: 20031023
  6. GLIPIZIDE. [Concomitant]
     Active Substance: GLIPIZIDE
     Dosage: UNK UNK,UNK
     Route: 065
     Dates: start: 1995
  7. ADRIAMYCIN [DOXORUBICIN] [Concomitant]
  8. TAXOTERE [Suspect]
     Active Substance: DOCETAXEL
     Indication: BREAST CANCER FEMALE
     Dosage: 145 MG,QCY
     Route: 042
     Dates: start: 20030826, end: 20030826
  9. SIMVASTATIN. [Concomitant]
     Active Substance: SIMVASTATIN
     Dosage: UNK UNK,UNK
     Route: 065
     Dates: start: 1995
  10. FOSINOPRIL [Concomitant]
     Active Substance: FOSINOPRIL
     Dosage: UNK UNK,UNK
     Route: 065
     Dates: start: 1995
  11. MONOPRIL [Concomitant]
     Active Substance: FOSINOPRIL SODIUM
     Dosage: 10 MG, BID

REACTIONS (2)
  - Alopecia [Recovering/Resolving]
  - Psychological trauma [Unknown]

NARRATIVE: CASE EVENT DATE: 200404
